FAERS Safety Report 11910978 (Version 1)
Quarter: 2016Q1

REPORT INFORMATION
  Report Type: Spontaneous
  Country: US (occurrence: None)
  Receive Date: 20160111
  Receipt Date: 20160111
  Transmission Date: 20160526
  Serious: No
  Sender: FDA-Public Use
  Company Number: None

PATIENT
  Age: 43 Year
  Sex: Female
  Weight: 120.2 kg

DRUGS (4)
  1. CELEXA [Concomitant]
     Active Substance: CITALOPRAM HYDROBROMIDE
  2. ALBUTEROL INHALER [Concomitant]
     Active Substance: ALBUTEROL
  3. DULERA INHALER [Concomitant]
  4. KIRKLAND SIGNATURE ALLER TEC ALLERGY [Suspect]
     Active Substance: CETIRIZINE HYDROCHLORIDE
     Indication: MULTIPLE ALLERGIES
     Dosage: 1 PILL DAILY BY MOUTH ONCE DAILY TAKEN BY MOUTH
     Route: 048
     Dates: start: 20100101, end: 20160101

REACTIONS (11)
  - Pruritus [None]
  - Insomnia [None]
  - Drug withdrawal syndrome [None]
  - Drug dependence [None]
  - Emotional distress [None]
  - Depression [None]
  - Weight abnormal [None]
  - Mental disorder [None]
  - Burning sensation [None]
  - Skin disorder [None]
  - Rash [None]

NARRATIVE: CASE EVENT DATE: 20160102
